FAERS Safety Report 9375173 (Version 1)
Quarter: 2013Q2

REPORT INFORMATION
  Report Type: Spontaneous
  Country: US (occurrence: US)
  Receive Date: 20130628
  Receipt Date: 20130628
  Transmission Date: 20140414
  Serious: No
  Sender: FDA-Public Use
  Company Number: US-PFIZER INC-2013193283

PATIENT
  Sex: Female

DRUGS (2)
  1. LYRICA [Suspect]
     Indication: PAIN
     Dosage: THREE CAPSULES DAILY
     Dates: start: 20130621, end: 20130624
  2. LYRICA [Suspect]
     Dosage: TWO CAPSULES DAILY
     Dates: start: 20130625

REACTIONS (4)
  - Vision blurred [Unknown]
  - Abnormal behaviour [Unknown]
  - Feeling abnormal [Unknown]
  - Gait disturbance [Unknown]
